FAERS Safety Report 16760839 (Version 5)
Quarter: 2020Q1

REPORT INFORMATION
  Report Type: Report from Study
  Country: US (occurrence: US)
  Receive Date: 20190830
  Receipt Date: 20200319
  Transmission Date: 20200409
  Serious: No
  Sender: FDA-Public Use
  Company Number: PHEH2019US036175

PATIENT
  Age: 26 Year
  Sex: Female

DRUGS (1)
  1. GILENYA [Suspect]
     Active Substance: FINGOLIMOD HYDROCHLORIDE
     Indication: MULTIPLE SCLEROSIS
     Dosage: 0.5 MG, QD
     Route: 048
     Dates: start: 20190828

REACTIONS (7)
  - Psychomotor hyperactivity [Unknown]
  - Concomitant disease aggravated [Unknown]
  - Lymphocyte count decreased [Recovering/Resolving]
  - Fatigue [Recovered/Resolved]
  - Somnolence [Unknown]
  - Dry mouth [Not Recovered/Not Resolved]
  - Headache [Recovered/Resolved]

NARRATIVE: CASE EVENT DATE: 201908
